FAERS Safety Report 4984878-9 (Version None)
Quarter: 2006Q2

REPORT INFORMATION
  Report Type: 
  Country: None (occurrence: None)
  Receive Date: 20060427
  Receipt Date: 20040511
  Transmission Date: 20061013
  Serious: Yes (Hospitalization, Disabling, Other)
  Sender: FDA-Public Use
  Company Number: US-ABBOTT-04P-163-0260769-00

PATIENT
  Sex: Male

DRUGS (4)
  1. RITONAVIR SOFT GELATIN CAPSULES [Suspect]
     Indication: HIV INFECTION
     Route: 048
     Dates: start: 20040402, end: 20040716
  2. TIPRANAVIR [Concomitant]
     Indication: HIV INFECTION
     Route: 048
     Dates: start: 20040402, end: 20040828
  3. ENFUVIRTIDE [Concomitant]
     Indication: HIV INFECTION
     Route: 058
     Dates: start: 20040402, end: 20040828
  4. TENOFOVIR [Concomitant]
     Indication: HIV INFECTION
     Route: 048
     Dates: start: 20040402, end: 20040828

REACTIONS (19)
  - ACQUIRED IMMUNODEFICIENCY SYNDROME [None]
  - CARDIO-RESPIRATORY ARREST [None]
  - CEREBRAL HAEMORRHAGE [None]
  - CONDITION AGGRAVATED [None]
  - COORDINATION ABNORMAL [None]
  - DEMYELINATION [None]
  - DYSARTHRIA [None]
  - ENCEPHALITIS [None]
  - ENCEPHALOPATHY [None]
  - GAIT DISTURBANCE [None]
  - GLIOSIS [None]
  - HEADACHE [None]
  - HEMIPARESIS [None]
  - HYPERREFLEXIA [None]
  - LEUKOENCEPHALOMYELITIS [None]
  - MULTIPLE SCLEROSIS [None]
  - MUSCLE SPASTICITY [None]
  - MYOCARDIAL INFARCTION [None]
  - PROGRESSIVE MULTIFOCAL LEUKOENCEPHALOPATHY [None]
